FAERS Safety Report 9071916 (Version 1)
Quarter: 2013Q1

REPORT INFORMATION
  Report Type: Report from Study
  Country: US (occurrence: US)
  Receive Date: 20130129
  Receipt Date: 20130129
  Transmission Date: 20140127
  Serious: No
  Sender: FDA-Public Use
  Company Number: US-ABBOTT-12P-163-0929580-00

PATIENT
  Age: 27 Year
  Sex: Female

DRUGS (3)
  1. HUMIRA 40 MG/0.8 ML PEN [Suspect]
     Indication: CROHN^S DISEASE
     Dates: start: 20110819
  2. GENERIC ORTHO NOVUM [Concomitant]
     Indication: CONTRACEPTION
     Dosage: 1 TAB DAILY
     Route: 048
  3. ASACOL [Concomitant]
     Indication: PRODUCT USED FOR UNKNOWN INDICATION
     Dosage: 400 MG, 2 TABS THREE TIMES DAILY
     Route: 048

REACTIONS (6)
  - Otorrhoea [Not Recovered/Not Resolved]
  - Ear infection [Not Recovered/Not Resolved]
  - Infection [Not Recovered/Not Resolved]
  - Umbilical erythema [Not Recovered/Not Resolved]
  - Wound drainage [Not Recovered/Not Resolved]
  - Wound complication [Not Recovered/Not Resolved]
